FAERS Safety Report 21684645 (Version 2)
Quarter: 2022Q4

REPORT INFORMATION
  Report Type: Report from Study
  Country: US (occurrence: US)
  Receive Date: 20221205
  Receipt Date: 20221221
  Transmission Date: 20230113
  Serious: Yes (Other)
  Sender: FDA-Public Use
  Company Number: US-SEATTLE GENETICS-2022SGN10001

PATIENT
  Age: 76 Year
  Sex: Female
  Weight: 59.4 kg

DRUGS (26)
  1. TUCATINIB [Suspect]
     Active Substance: TUCATINIB
     Indication: HER2 positive breast cancer
     Dosage: 150 MG
     Route: 065
     Dates: start: 20220823
  2. CAPECITABINE [Suspect]
     Active Substance: CAPECITABINE
     Indication: HER2 positive breast cancer
     Dosage: 1000 MG, BID FOR 14 DAYS THEN TAKE 7 DAYS OFF
     Route: 065
     Dates: start: 20220823
  3. TRASTUZUMAB [Suspect]
     Active Substance: TRASTUZUMAB
     Indication: HER2 positive breast cancer
     Route: 065
  4. ALPHA LIPOIC ACID [Concomitant]
     Active Substance: .ALPHA.-LIPOIC ACID
     Dosage: 300 MG, QD
     Route: 048
  5. BEETROOT [Concomitant]
     Dosage: 1000 MG, QD
     Route: 048
  6. CALCIUM-MAGNSEIUM WITH ZINC [Concomitant]
     Dosage: UNK, QD
     Route: 048
  7. CHROMIUM PICOLINATE [Concomitant]
     Active Substance: CHROMIUM PICOLINATE
     Dosage: 800 MCG, QD
     Route: 048
  8. CRANBERRY COMPLEX [Concomitant]
     Dosage: 250 MG, QD
     Route: 048
  9. CYANOCOBALAMIN [Concomitant]
     Active Substance: CYANOCOBALAMIN
     Dosage: 1000 MCG, QD
     Route: 048
  10. DANDELION ROOT [Concomitant]
     Dosage: 1000 MG, QD
     Route: 048
  11. GLUCOSAMINE CHONDROITIN COMPLEX [ASCORBIC ACID;CHONDROITIN SULFATE SOD [Concomitant]
     Dosage: 1 CAP, QD
     Route: 048
  12. LIDOCAINE 5% EXTRA [Concomitant]
     Dosage: APPLY EXTERNALLY TO AFFECTED AREA TID
     Dates: start: 20220908
  13. LOPERAMIDE HYDROCHLORIDE [Concomitant]
     Active Substance: LOPERAMIDE HYDROCHLORIDE
     Indication: Diarrhoea
     Dosage: 2 MG, TAKE 2 CAPLETS WITH 1ST LOOSE STOOL FOLLOWED BY 1 CAP EVERY 2-4 HR PRN. MAX DOSE 8 CAP/DAY
     Route: 048
     Dates: start: 20220809
  14. LUTEIN-ZEAXANTHIN [Concomitant]
     Dosage: 1 CAP, QD
     Route: 048
  15. MULTIVITAMIN [ASCORBIC ACID;BIOTIN;CALCIUM;CHOLINE BITARTRATE;CHROMIUM [Concomitant]
     Dosage: 1 TAB , QD
     Route: 048
  16. ACETYLCYSTEINE [Concomitant]
     Active Substance: ACETYLCYSTEINE
     Dosage: 600 MG, QD
     Route: 048
  17. FISH OIL [Concomitant]
     Active Substance: FISH OIL
     Dosage: 1 G, QD
     Route: 048
  18. PRILOSEC [Concomitant]
     Active Substance: OMEPRAZOLE MAGNESIUM
     Dosage: 20 MG, QD
     Route: 048
     Dates: start: 20141125
  19. ZOFRAN [Concomitant]
     Active Substance: ONDANSETRON HYDROCHLORIDE
     Indication: Nausea
     Dosage: 8 MG, Q8HR PRN
     Route: 048
     Dates: start: 20201221
  20. ZOFRAN [Concomitant]
     Active Substance: ONDANSETRON HYDROCHLORIDE
     Indication: Vomiting
     Dosage: 8 MG, Q8HR PRN
     Route: 048
     Dates: start: 20220809
  21. POTASSIUM CHLORIDE [Concomitant]
     Active Substance: POTASSIUM CHLORIDE
     Indication: Hypokalaemia
     Dosage: 20 MEQ, QD
     Route: 048
  22. PREDNISONE [Concomitant]
     Active Substance: PREDNISONE
     Dosage: 2.5 MG, TAKE 2 TABS BY MOUTH EVERY OTHER DAY AND 1 TAB EVERY OTHER DAY
     Route: 048
     Dates: start: 20220127
  23. METAMUCIL THERAPY FOR REGULARITY [Concomitant]
     Active Substance: PSYLLIUM HUSK
     Dosage: 58.6% QD
     Route: 048
  24. SELENIUM [Concomitant]
     Active Substance: SELENIUM
     Dosage: 200 MCG, QD
  25. SENOKOT-S [Concomitant]
     Active Substance: DOCUSATE SODIUM\SENNOSIDES
     Dosage: 8.6-50 MG PER TAB, QD
     Route: 048
  26. VITAMIN D3 [Concomitant]
     Active Substance: CHOLECALCIFEROL
     Dosage: 1000 MG, QD
     Route: 048

REACTIONS (8)
  - Neuropathy peripheral [Recovered/Resolved]
  - Hypokalaemia [Unknown]
  - Fall [Recovered/Resolved]
  - Contusion [Recovering/Resolving]
  - Dysgraphia [Recovered/Resolved]
  - Palmar-plantar erythrodysaesthesia syndrome [Recovered/Resolved]
  - Diarrhoea [Recovered/Resolved]
  - Diarrhoea [Recovering/Resolving]

NARRATIVE: CASE EVENT DATE: 20220913
